FAERS Safety Report 4803446-2 (Version None)
Quarter: 2005Q4

REPORT INFORMATION
  Report Type: 
  Country: None (occurrence: None)
  Receive Date: 20051019
  Receipt Date: 20051010
  Transmission Date: 20060501
  Serious: Yes (Disabling)
  Sender: FDA-Public Use
  Company Number: 200513333FR

PATIENT
  Age: 1 Day
  Sex: Male
  Weight: 3.6 kg

DRUGS (3)
  1. AMAREL [Suspect]
     Indication: DIABETES MELLITUS
     Dosage: DOSE UNIT: UNITS
     Route: 048
     Dates: start: 20010101, end: 20020901
  2. ACTRAPID [Concomitant]
  3. INSULATARD NPH HUMAN [Concomitant]

REACTIONS (6)
  - DRUG EXPOSURE DURING PREGNANCY [None]
  - FACIAL DYSMORPHISM [None]
  - HEART DISEASE CONGENITAL [None]
  - MICROCEPHALY [None]
  - OLIGOHYDRAMNIOS [None]
  - VENTRICULAR SEPTAL DEFECT [None]
